FAERS Safety Report 13702608 (Version 1)
Quarter: 2017Q2

REPORT INFORMATION
  Report Type: Spontaneous
  Country: DE (occurrence: DE)
  Receive Date: 20170629
  Receipt Date: 20170629
  Transmission Date: 20170830
  Serious: Yes (Other)
  Sender: FDA-Public Use
  Company Number: GXKR2017DE003475

PATIENT
  Sex: Female

DRUGS (1)
  1. ACIC [Suspect]
     Active Substance: ACYCLOVIR
     Indication: HERPES ZOSTER
     Dosage: UNK UKN, UNK
     Route: 048

REACTIONS (1)
  - Thrombocytopenia [Unknown]
